FAERS Safety Report 14228946 (Version 2)
Quarter: 2018Q2

REPORT INFORMATION
  Report Type: Spontaneous
  Country: US (occurrence: US)
  Receive Date: 20171128
  Receipt Date: 20180601
  Transmission Date: 20180711
  Serious: No
  Sender: FDA-Public Use
  Company Number: US-ASTRAZENECA-2017SF13140

PATIENT
  Age: 81 Year
  Sex: Female

DRUGS (3)
  1. TUDORZA PRESSAIR [Suspect]
     Active Substance: ACLIDINIUM BROMIDE
     Indication: CHRONIC OBSTRUCTIVE PULMONARY DISEASE
     Dosage: 400 MCG , ONE PUFF ONCE A DAY
     Route: 055
     Dates: start: 2017
  2. ADVAIR HFA [Concomitant]
     Active Substance: FLUTICASONE PROPIONATE\SALMETEROL XINAFOATE
     Dosage: DAILY
  3. TUDORZA PRESSAIR [Suspect]
     Active Substance: ACLIDINIUM BROMIDE
     Indication: CHRONIC OBSTRUCTIVE PULMONARY DISEASE
     Dosage: 400 MCG , ONE PUFF TWO TIMES ADAY
     Route: 055
     Dates: start: 2014

REACTIONS (11)
  - Eye disorder [Recovered/Resolved]
  - Intentional product misuse [Not Recovered/Not Resolved]
  - Mental impairment [Recovered/Resolved]
  - Device issue [Unknown]
  - Feeling abnormal [Recovered/Resolved]
  - Fatigue [Not Recovered/Not Resolved]
  - Head discomfort [Recovered/Resolved]
  - Underdose [Unknown]
  - Device failure [Unknown]
  - Macular degeneration [Not Recovered/Not Resolved]
  - Vision blurred [Recovered/Resolved]

NARRATIVE: CASE EVENT DATE: 2014
